FAERS Safety Report 10006267 (Version 1)
Quarter: 2014Q1

REPORT INFORMATION
  Report Type: Spontaneous
  Country: FR (occurrence: FR)
  Receive Date: 20140313
  Receipt Date: 20140313
  Transmission Date: 20141002
  Serious: Yes (Other)
  Sender: FDA-Public Use
  Company Number: FR-ASTRAZENECA-2014SE16786

PATIENT
  Age: 74 Year
  Sex: Male

DRUGS (7)
  1. INEXIUM [Suspect]
     Route: 048
     Dates: start: 2012
  2. BRILIQUE [Suspect]
     Indication: PROSTHESIS IMPLANTATION
     Route: 048
     Dates: start: 2012, end: 2013
  3. BRILIQUE [Suspect]
     Indication: PROSTHESIS IMPLANTATION
     Route: 048
     Dates: start: 2013, end: 201401
  4. KARDEGIC [Concomitant]
     Dates: start: 2012, end: 2013
  5. KARDEGIC [Concomitant]
     Dates: start: 2013, end: 201401
  6. BISOPROLOL [Concomitant]
     Dates: start: 2012
  7. TRIATEC [Concomitant]
     Dates: start: 2012

REACTIONS (11)
  - Lymphoma [Not Recovered/Not Resolved]
  - Myocardial infarction [Unknown]
  - Infection [Unknown]
  - Oesophageal pain [Recovered/Resolved]
  - Hepatic pain [Recovered/Resolved]
  - Oesophagitis [Recovered/Resolved]
  - Abdominal pain upper [Not Recovered/Not Resolved]
  - Vertigo [Recovered/Resolved]
  - Off label use [Recovered/Resolved]
  - Incorrect dose administered [Recovered/Resolved]
  - Intentional drug misuse [Recovered/Resolved]
